FAERS Safety Report 9008512 (Version 1)
Quarter: 2013Q1

REPORT INFORMATION
  Report Type: Report from Study
  Country: GB (occurrence: GB)
  Receive Date: 20130111
  Receipt Date: 20130111
  Transmission Date: 20140127
  Serious: Yes (Other)
  Sender: FDA-Public Use
  Company Number: GB-PFIZER INC-2013008434

PATIENT
  Age: 45 Year
  Sex: Female
  Weight: 73.4 kg

DRUGS (5)
  1. IRINOTECAN HCL [Suspect]
     Indication: CHEMOTHERAPY
     Route: 065
  2. OXALIPLATIN [Suspect]
     Indication: CHEMOTHERAPY
     Dosage: 130 (UNITS UNSPECIFIED)
     Route: 065
     Dates: start: 20061115, end: 20070404
  3. FLUOROURACIL [Suspect]
     Indication: CHEMOTHERAPY
     Route: 065
  4. FOLINIC ACID [Suspect]
     Indication: CHEMOTHERAPY
     Route: 065
  5. CAPECITABINE [Concomitant]
     Indication: NEOPLASM MALIGNANT
     Dosage: 1000 UNIT(S) 2 / 1 DAYS
     Route: 048
     Dates: start: 20061115, end: 20070418

REACTIONS (3)
  - Neurotoxicity [Recovered/Resolved]
  - Nausea [Recovered/Resolved]
  - Neuropathy peripheral [Recovered/Resolved]
